FAERS Safety Report 6453697-9 (Version None)
Quarter: 2009Q4

REPORT INFORMATION
  Report Type: 
  Country: None (occurrence: None)
  Receive Date: 20091123
  Receipt Date: 20091123
  Transmission Date: 20100525
  Serious: Yes (Other)
  Sender: FDA-Public Use
  Company Number: None

PATIENT
  Age: 43 Year
  Sex: Female
  Weight: 99.7913 kg

DRUGS (4)
  1. SEROQUEL XR [Suspect]
     Indication: BIPOLAR DISORDER
     Dosage: 600MG EVENING PO
     Route: 048
     Dates: start: 20091026, end: 20091114
  2. TRILEPTAL [Concomitant]
  3. EFFEXOR XR [Concomitant]
  4. KLONOPIN [Concomitant]

REACTIONS (2)
  - PARAESTHESIA [None]
  - PRODUCT SUBSTITUTION ISSUE [None]
